FAERS Safety Report 7650921-1 (Version None)
Quarter: 2011Q3

REPORT INFORMATION
  Report Type: 
  Country: None (occurrence: None)
  Receive Date: 20110727
  Receipt Date: 20110711
  Transmission Date: 20111222
  Serious: Yes (Other)
  Sender: FDA-Public Use
  Company Number: 2011MA008669

PATIENT
  Age: 27 Year
  Sex: Male

DRUGS (1)
  1. HALOPERIDOL LACTATE [Suspect]
     Indication: SCHIZOPHRENIA, PARANOID TYPE
     Dosage: 10 MG; QD

REACTIONS (9)
  - TREMOR [None]
  - GAIT DISTURBANCE [None]
  - NORMAL PRESSURE HYDROCEPHALUS [None]
  - ATAXIA [None]
  - RED BLOOD CELL SEDIMENTATION RATE INCREASED [None]
  - CEREBELLAR SYNDROME [None]
  - MUSCLE RIGIDITY [None]
  - REFUSAL OF TREATMENT BY PATIENT [None]
  - DISTURBANCE IN ATTENTION [None]
